FAERS Safety Report 16820845 (Version 1)
Quarter: 2019Q3

REPORT INFORMATION
  Report Type: Spontaneous
  Country: FR (occurrence: FR)
  Receive Date: 20190918
  Receipt Date: 20190918
  Transmission Date: 20191005
  Serious: Yes (Hospitalization)
  Sender: FDA-Public Use
  Company Number: FR-TEVA-2019-FR-1107701

PATIENT
  Age: 59 Year
  Sex: Female

DRUGS (2)
  1. CHLORHYDRATE D^HYDROXYZINE [Suspect]
     Active Substance: HYDROXYZINE HYDROCHLORIDE
     Indication: TOXICITY TO VARIOUS AGENTS
     Dosage: 10 DOSAGE FORMS
     Route: 048
     Dates: start: 20190807, end: 20190807
  2. LAROXYL 40 MG/ML, SOLUTION BUVABLE [Suspect]
     Active Substance: AMITRIPTYLINE HYDROCHLORIDE
     Indication: TOXICITY TO VARIOUS AGENTS
     Dosage: 10 ML
     Route: 048
     Dates: start: 20190807, end: 20190807

REACTIONS (2)
  - Somnolence [Recovered/Resolved]
  - Psychomotor skills impaired [Recovered/Resolved]

NARRATIVE: CASE EVENT DATE: 20190807
